FAERS Safety Report 10951810 (Version 2)
Quarter: 2015Q2

REPORT INFORMATION
  Report Type: Report from Study
  Country: US (occurrence: US)
  Receive Date: 20150325
  Receipt Date: 20150403
  Transmission Date: 20150821
  Serious: Yes (Hospitalization)
  Sender: FDA-Public Use
  Company Number: US-ABBVIE-15K-163-1363899-00

PATIENT
  Age: 68 Year
  Sex: Male
  Weight: 56.75 kg

DRUGS (6)
  1. ANDROGEL [Concomitant]
     Active Substance: TESTOSTERONE
     Indication: PRODUCT USED FOR UNKNOWN INDICATION
  2. HUMIRA [Suspect]
     Active Substance: ADALIMUMAB
     Indication: CROHN^S DISEASE
     Route: 058
     Dates: start: 2013, end: 201412
  3. INDOMETHACIN. [Concomitant]
     Active Substance: INDOMETHACIN
     Indication: GOUT
  4. VITAMIN A AND D [Concomitant]
     Active Substance: LANOLIN\PETROLATUM
     Indication: PRODUCT USED FOR UNKNOWN INDICATION
  5. HUMIRA [Suspect]
     Active Substance: ADALIMUMAB
     Route: 058
     Dates: start: 201502
  6. VITAMIN B12 [Concomitant]
     Active Substance: CYANOCOBALAMIN
     Indication: PRODUCT USED FOR UNKNOWN INDICATION

REACTIONS (5)
  - Anaemia [Not Recovered/Not Resolved]
  - Syncope [Recovered/Resolved]
  - Fall [Recovered/Resolved]
  - Gastrointestinal haemorrhage [Recovered/Resolved]
  - Haemoglobin decreased [Recovered/Resolved]

NARRATIVE: CASE EVENT DATE: 201412
